FAERS Safety Report 7029510-8 (Version None)
Quarter: 2010Q4

REPORT INFORMATION
  Report Type: 
  Country: None (occurrence: None)
  Receive Date: 20101005
  Receipt Date: 20100923
  Transmission Date: 20110411
  Serious: Yes (Other)
  Sender: FDA-Public Use
  Company Number: US-ELI_LILLY_AND_COMPANY-US201009006405

PATIENT
  Sex: Male

DRUGS (2)
  1. CIALIS [Suspect]
     Indication: ERECTILE DYSFUNCTION
     Dosage: 20 MG, AS NEEDED
     Dates: start: 20100824
  2. COUMADIN [Concomitant]

REACTIONS (4)
  - DRUG INTERACTION [None]
  - EXPIRED DRUG ADMINISTERED [None]
  - HAEMORRHAGE [None]
  - PROTHROMBIN TIME PROLONGED [None]
